FAERS Safety Report 5574387-0 (Version None)
Quarter: 2007Q4

REPORT INFORMATION
  Report Type: 
  Country: None (occurrence: None)
  Receive Date: 20071226
  Receipt Date: 20071226
  Transmission Date: 20080405
  Serious: No
  Sender: FDA-Public Use
  Company Number: None

PATIENT

DRUGS (1)
  1. PROAIR HFA [Suspect]
     Indication: CHRONIC OBSTRUCTIVE PULMONARY DISEASE
     Dosage: 2 INHALATIONS AS NEEDED INHAL
     Route: 055
     Dates: start: 20070601, end: 20071221

REACTIONS (2)
  - PHARMACEUTICAL PRODUCT COMPLAINT [None]
  - WHEEZING [None]
